FAERS Safety Report 5264104-6 (Version None)
Quarter: 2007Q1

REPORT INFORMATION
  Report Type: 
  Country: None (occurrence: None)
  Receive Date: 20070309
  Receipt Date: 20070223
  Transmission Date: 20070707
  Serious: Yes (Other)
  Sender: FDA-Public Use
  Company Number: 430004M07DEU

PATIENT
  Sex: Female

DRUGS (1)
  1. NOVANTRONE [Suspect]

REACTIONS (4)
  - CARDIAC DISORDER [None]
  - DILATATION ATRIAL [None]
  - INFLAMMATION [None]
  - MITRAL VALVE DISEASE [None]
